FAERS Safety Report 4952388-0 (Version None)
Quarter: 2006Q1

REPORT INFORMATION
  Report Type: 
  Country: None (occurrence: None)
  Receive Date: 20060317
  Receipt Date: 20060306
  Transmission Date: 20060701
  Serious: Yes (Hospitalization)
  Sender: FDA-Public Use
  Company Number: 2005EU001173

PATIENT
  Age: 57 Year
  Sex: Male

DRUGS (9)
  1. FK506           (TACROLIMUS) [Suspect]
     Indication: LIVER TRANSPLANT
     Dosage: SEE IMAGE
     Dates: start: 20050311, end: 20050326
  2. FK506           (TACROLIMUS) [Suspect]
     Indication: LIVER TRANSPLANT
     Dosage: SEE IMAGE
     Dates: start: 20050327
  3. MYCOPHENOLATE MOFETIL [Suspect]
     Indication: LIVER TRANSPLANT
     Dosage: SEE IMAGE
     Dates: start: 20050311, end: 20050317
  4. MYCOPHENOLATE MOFETIL [Suspect]
     Indication: LIVER TRANSPLANT
     Dosage: SEE IMAGE
     Dates: start: 20050318, end: 20050326
  5. METHYLPREDNISOLONE [Suspect]
     Indication: LIVER TRANSPLANT
     Dosage: 120.00 MG, UID/QD,
     Dates: start: 20050311, end: 20050313
  6. PREDNISONE TAB [Suspect]
     Indication: LIVER TRANSPLANT
     Dosage: 5.00 MG, UID/QD,
     Dates: start: 20050314
  7. GANCICLOVIR  (GANCICLOVIR) [Concomitant]
  8. IMMUNE GLOBULIN INTRAVENOUS (HUMAN) [Concomitant]
  9. DIGOXIN [Concomitant]

REACTIONS (1)
  - CARPUS CURVUS [None]
